FAERS Safety Report 23428422 (Version 2)
Quarter: 2024Q4

REPORT INFORMATION
  Report Type: Spontaneous
  Country: PT (occurrence: PT)
  Receive Date: 20240122
  Receipt Date: 20241030
  Transmission Date: 20250114
  Serious: Yes (Disabling)
  Sender: ORGANON
  Company Number: None

PATIENT
  Age: 65 Year
  Sex: Female
  Weight: 53 kg

DRUGS (1)
  1. FOSAVANCE [Suspect]
     Active Substance: ALENDRONATE SODIUM\CHOLECALCIFEROL
     Indication: Osteoporosis
     Dosage: 70 MILLIGRAM, QW, (STRENGTH: 70 MG +2800 U.I.)
     Route: 048
     Dates: start: 20230501, end: 20240107

REACTIONS (4)
  - Balance disorder [Not Recovered/Not Resolved]
  - Dizziness [Not Recovered/Not Resolved]
  - Ear inflammation [Not Recovered/Not Resolved]
  - Head discomfort [Not Recovered/Not Resolved]

NARRATIVE: CASE EVENT DATE: 20230806
